FAERS Safety Report 20807972 (Version 1)
Quarter: 2022Q2

REPORT INFORMATION
  Report Type: Spontaneous
  Country: FR (occurrence: FR)
  Receive Date: 20220510
  Receipt Date: 20220510
  Transmission Date: 20220721
  Serious: No
  Sender: FDA-Public Use
  Company Number: None

PATIENT
  Age: 38 Year
  Sex: Female
  Weight: 68 kg

DRUGS (2)
  1. SOTROVIMAB [Suspect]
     Active Substance: SOTROVIMAB
     Indication: COVID-19 treatment
     Dosage: 1 DF, TOTAL (1 INTRAVENOUS OF 30 MIN)
     Route: 042
     Dates: start: 20220318, end: 20220318
  2. GILENYA [Concomitant]
     Active Substance: FINGOLIMOD HYDROCHLORIDE
     Indication: Multiple sclerosis
     Dosage: 1 DF, QD
     Route: 048
     Dates: end: 20220323

REACTIONS (4)
  - Chest pain [Recovering/Resolving]
  - Pharyngeal oedema [Recovered/Resolved]
  - Dyspnoea [Recovering/Resolving]
  - Tongue oedema [Recovered/Resolved]

NARRATIVE: CASE EVENT DATE: 20220318
